FAERS Safety Report 18435286 (Version 1)
Quarter: 2020Q4

REPORT INFORMATION
  Report Type: Spontaneous
  Country: US (occurrence: US)
  Receive Date: 20201027
  Receipt Date: 20201027
  Transmission Date: 20210114
  Serious: Yes (Other)
  Sender: FDA-Public Use
  Company Number: None

PATIENT
  Age: 63 Year
  Sex: Male
  Weight: 76.5 kg

DRUGS (10)
  1. PROZAC [Suspect]
     Active Substance: FLUOXETINE HYDROCHLORIDE
  2. LAMOTOTRIGINE [Concomitant]
  3. ASPIRIN. [Concomitant]
     Active Substance: ASPIRIN
  4. THIOTHIXENE. [Concomitant]
     Active Substance: THIOTHIXENE
  5. SEROQUEL [Suspect]
     Active Substance: QUETIAPINE FUMARATE
  6. LATUDA [Suspect]
     Active Substance: LURASIDONE HYDROCHLORIDE
     Indication: BIPOLAR DISORDER
     Dates: start: 20170102, end: 20170403
  7. GEODON [Suspect]
     Active Substance: ZIPRASIDONE HYDROCHLORIDE\ZIPRASIDONE MESYLATE
     Indication: BIPOLAR DISORDER
     Dates: start: 20170924, end: 20170927
  8. LEVOTHYROXINE. [Concomitant]
     Active Substance: LEVOTHYROXINE
  9. ATIVAN [Suspect]
     Active Substance: LORAZEPAM
  10. BC (ASPIRIN\CAFFEINE) [Concomitant]
     Active Substance: ASPIRIN\CAFFEINE

REACTIONS (2)
  - Drug ineffective [None]
  - Intensive care [None]

NARRATIVE: CASE EVENT DATE: 20170924
